FAERS Safety Report 7130650-3 (Version None)
Quarter: 2010Q4

REPORT INFORMATION
  Report Type: 
  Country: None (occurrence: None)
  Receive Date: 20101029
  Receipt Date: 20100810
  Transmission Date: 20110411
  Serious: Yes (Hospitalization)
  Sender: FDA-Public Use
  Company Number: US-003398

PATIENT
  Sex: Male
  Weight: 75 kg

DRUGS (1)
  1. DEGARELIX (240 MG, 80 MG) [Suspect]
     Indication: PROSTATE CANCER
     Dosage: 240 MG 1X SUBCUTANEOUS, 80 MG 1X/MONTH SUBCUTANEOUS
     Route: 058
     Dates: start: 20091202

REACTIONS (6)
  - BLOOD CULTURE POSITIVE [None]
  - LYMPHADENOPATHY [None]
  - METASTATIC NEOPLASM [None]
  - NEUTROPENIC INFECTION [None]
  - OEDEMA PERIPHERAL [None]
  - THROMBOSIS [None]
